FAERS Safety Report 6204830-5 (Version None)
Quarter: 2009Q2

REPORT INFORMATION
  Report Type: 
  Country: None (occurrence: None)
  Receive Date: 20090527
  Receipt Date: 20090514
  Transmission Date: 20091009
  Serious: Yes (Disabling, Other)
  Sender: FDA-Public Use
  Company Number: US-PFIZER INC-2008076263

PATIENT
  Sex: Male
  Weight: 88 kg

DRUGS (4)
  1. VIAGRA [Suspect]
     Indication: ERECTILE DYSFUNCTION
     Dosage: 25 MG, UNK
     Route: 048
     Dates: start: 20040201, end: 20060201
  2. LITHIUM [Concomitant]
     Dosage: 450 MG, UNK
     Dates: start: 19980101
  3. METFORMIN [Concomitant]
     Dosage: 2000 MG, UNK
     Dates: start: 19920101
  4. LIPITOR [Concomitant]
     Dosage: 10 MG, UNK
     Dates: start: 20020101

REACTIONS (1)
  - OPTIC ISCHAEMIC NEUROPATHY [None]
